FAERS Safety Report 6593138-4 (Version None)
Quarter: 2010Q1

REPORT INFORMATION
  Report Type: 
  Country: None (occurrence: None)
  Receive Date: 20100222
  Receipt Date: 20100209
  Transmission Date: 20100710
  Serious: Yes (Other)
  Sender: FDA-Public Use
  Company Number: PHHY2010DE07726

PATIENT
  Sex: Male
  Weight: 79 kg

DRUGS (3)
  1. EXFORGE [Suspect]
     Indication: ESSENTIAL HYPERTENSION
     Dosage: 10/160 MG PER DAY
     Route: 048
     Dates: start: 20090422
  2. CORINFAR [Concomitant]
     Dosage: 10 MG, BID
  3. LISINOPRIL [Concomitant]
     Dosage: 10 MG, BID

REACTIONS (1)
  - HEPATIC NEOPLASM MALIGNANT [None]
